FAERS Safety Report 10010266 (Version 1)
Quarter: 2014Q1

REPORT INFORMATION
  Report Type: Report from Study
  Country: US (occurrence: US)
  Receive Date: 20140314
  Receipt Date: 20140314
  Transmission Date: 20141002
  Serious: Yes (Other)
  Sender: FDA-Public Use
  Company Number: US-ROCHE-1361127

PATIENT
  Age: 68 Year
  Sex: Female

DRUGS (6)
  1. HERCEPTIN [Suspect]
     Indication: BREAST CANCER METASTATIC
     Dosage: 1ST LINE
     Route: 065
  2. KADCYLA [Suspect]
     Indication: BREAST CANCER METASTATIC
     Dosage: 2ND LINE
     Route: 065
  3. XELODA [Suspect]
     Indication: BREAST CANCER METASTATIC
     Dosage: 3RD LINE
     Route: 065
  4. PARAPLATIN [Concomitant]
     Dosage: 1L
     Route: 065
  5. TAXOTERE [Concomitant]
     Dosage: 1L
     Route: 065
  6. TYKERB [Concomitant]
     Dosage: 3L
     Route: 065

REACTIONS (1)
  - Cardiotoxicity [Unknown]
